FAERS Safety Report 6634758-8 (Version None)
Quarter: 2010Q1

REPORT INFORMATION
  Report Type: 
  Country: None (occurrence: None)
  Receive Date: 20100315
  Receipt Date: 20100305
  Transmission Date: 20100710
  Serious: Yes (Hospitalization)
  Sender: FDA-Public Use
  Company Number: US-JNJFOC-20100302399

PATIENT
  Sex: Female
  Weight: 50.8 kg

DRUGS (8)
  1. INFLIXIMAB [Suspect]
     Indication: INFLAMMATORY BOWEL DISEASE
     Route: 042
  2. CIMZIA [Concomitant]
     Indication: INFLAMMATORY BOWEL DISEASE
  3. CIMZIA [Concomitant]
  4. 5-ASA [Concomitant]
     Route: 048
  5. PREDNISONE TAB [Concomitant]
  6. METHOTREXATE [Concomitant]
  7. ANTIBIOTICS [Concomitant]
     Indication: INFLAMMATORY BOWEL DISEASE
  8. PROBIOTICS [Concomitant]

REACTIONS (1)
  - NEPHROLITHIASIS [None]
